FAERS Safety Report 7043820-X (Version None)
Quarter: 2010Q4

REPORT INFORMATION
  Report Type: 
  Country: None (occurrence: None)
  Receive Date: 20101008
  Receipt Date: 20101008
  Transmission Date: 20110411
  Serious: Yes (Hospitalization)
  Sender: FDA-Public Use
  Company Number: None

PATIENT
  Age: 17 Year
  Sex: Female
  Weight: 54.2 kg

DRUGS (2)
  1. CEFTRIAXONE [Suspect]
     Indication: SEPSIS
     Dosage: 2,000 MG CEFTRIAXONE ONCE IV
     Route: 042
     Dates: start: 20100922
  2. STERILE WATER FOR RECONSTITUTION BAXTER LOT # C8 11216 [Suspect]
     Indication: SEPSIS
     Dosage: STERIL WATER 50 ML ONCE IV
     Route: 042
     Dates: start: 20100922

REACTIONS (1)
  - TOXIC SHOCK SYNDROME [None]
